FAERS Safety Report 21039996 (Version 2)
Quarter: 2022Q3

REPORT INFORMATION
  Report Type: Spontaneous
  Country: CH (occurrence: CH)
  Receive Date: 20220704
  Receipt Date: 20220722
  Transmission Date: 20221027
  Serious: Yes (Death, Hospitalization, Other)
  Sender: FDA-Public Use
  Company Number: CH-NOVARTISPH-NVSC2022CH110743

PATIENT
  Sex: Male

DRUGS (14)
  1. METHOTREXATE [Suspect]
     Active Substance: METHOTREXATE
     Indication: Central nervous system lymphoma
     Dosage: 3.5 GR/M2 (EVERY 3 WEEKS)
     Route: 042
     Dates: start: 20210622, end: 202107
  2. METHOTREXATE [Suspect]
     Active Substance: METHOTREXATE
     Dosage: 3.5 GR/M2 (EVERY 3 WEEKS)
     Route: 042
     Dates: start: 202108
  3. METHOTREXATE [Suspect]
     Active Substance: METHOTREXATE
     Dosage: UNK
     Route: 042
     Dates: start: 202108, end: 20210830
  4. RITUXIMAB [Suspect]
     Active Substance: RITUXIMAB
     Indication: Central nervous system lymphoma
     Dosage: 375 MG/M2 (DAY -5 AND DAY 0 EVERY 3 WEEKS)
     Route: 042
     Dates: start: 20210622, end: 202107
  5. RITUXIMAB [Suspect]
     Active Substance: RITUXIMAB
     Dosage: 375 MG/M2 (DAY -5 AND DAY 0 EVERY 3 WEEKS)
     Route: 042
     Dates: start: 202108
  6. RITUXIMAB [Suspect]
     Active Substance: RITUXIMAB
     Dosage: UNK
     Route: 042
     Dates: start: 202108, end: 20210830
  7. RITUXIMAB [Suspect]
     Active Substance: RITUXIMAB
     Dosage: UNK
     Route: 065
     Dates: start: 20220429, end: 20220520
  8. CYTARABINE [Suspect]
     Active Substance: CYTARABINE
     Indication: Central nervous system lymphoma
     Dosage: 2000 MG/M2, EVERY 12 HOURS FOR 2 DAYS
     Route: 042
     Dates: start: 202106, end: 202107
  9. CYTARABINE [Suspect]
     Active Substance: CYTARABINE
     Dosage: 2000 MG/M2, EVERY 12 HOURS FOR 2 DAYS
     Route: 042
     Dates: start: 202108, end: 20210813
  10. CYTARABINE [Suspect]
     Active Substance: CYTARABINE
     Dosage: 2000 MG/M2, EVERY 12 HOURS FOR 2 DAYS
     Route: 042
     Dates: start: 202108, end: 20210901
  11. CYTARABINE [Concomitant]
     Active Substance: CYTARABINE
     Indication: Product used for unknown indication
     Dosage: UNK
     Route: 065
  12. HYDROCORTISONE [Concomitant]
     Active Substance: HYDROCORTISONE
     Indication: Product used for unknown indication
     Dosage: UNK
     Route: 065
     Dates: start: 20220516
  13. HYDROCORTISONE [Concomitant]
     Active Substance: HYDROCORTISONE
     Dosage: UNK
     Route: 065
     Dates: start: 20220524
  14. IBRUTINIB [Concomitant]
     Active Substance: IBRUTINIB
     Indication: Product used for unknown indication
     Dosage: 560 MG, QD
     Route: 048
     Dates: start: 20220517

REACTIONS (5)
  - Central nervous system lymphoma [Fatal]
  - Malignant neoplasm progression [Fatal]
  - Haematotoxicity [Not Recovered/Not Resolved]
  - Pneumonia haemophilus [Recovering/Resolving]
  - Cranial nerve palsies multiple [Unknown]

NARRATIVE: CASE EVENT DATE: 20220401
